FAERS Safety Report 8387878-4 (Version None)
Quarter: 2012Q2

REPORT INFORMATION
  Report Type: 
  Country: None (occurrence: None)
  Receive Date: 20120525
  Receipt Date: 20120517
  Transmission Date: 20120825
  Serious: Yes (Hospitalization, Other)
  Sender: FDA-Public Use
  Company Number: US-ABBOTT-12P-163-0936260-00

PATIENT
  Sex: Female

DRUGS (1)
  1. MARINOL [Suspect]
     Indication: PRODUCT USED FOR UNKNOWN INDICATION

REACTIONS (15)
  - MALAISE [None]
  - CHEST PAIN [None]
  - DYSURIA [None]
  - GASTROINTESTINAL DISORDER [None]
  - PULMONARY FIBROSIS [None]
  - SEPSIS [None]
  - PELVIC MASS [None]
  - PNEUMONIA [None]
  - NAUSEA [None]
  - GASTROINTESTINAL MOTILITY DISORDER [None]
  - MYOCARDIAL INFARCTION [None]
  - ABDOMINAL PAIN [None]
  - DYSPHAGIA [None]
  - TRACHEOSTOMY [None]
  - OESOPHAGEAL STENOSIS [None]
